FAERS Safety Report 16987412 (Version 2)
Quarter: 2020Q1

REPORT INFORMATION
  Report Type: Spontaneous
  Country: GB (occurrence: GB)
  Receive Date: 20191104
  Receipt Date: 20200109
  Transmission Date: 20200409
  Serious: Yes (Hospitalization, Other)
  Sender: FDA-Public Use
  Company Number: GB-AUROBINDO-AUR-APL-2019-070040

PATIENT
  Age: 53 Year
  Sex: Female

DRUGS (6)
  1. DEPAKOTE [Suspect]
     Active Substance: DIVALPROEX SODIUM
     Dosage: 750 MILLIGRAM, TWO TIMES A DAY
     Route: 065
  2. ABILIFY MAINTENA [Suspect]
     Active Substance: ARIPIPRAZOLE
     Indication: SCHIZOPHRENIA
     Dosage: 400 MILLIGRAM (EVERY 4 WEEEKS)
     Route: 030
  3. ARIPIPRAZOLE TABLETS [Suspect]
     Active Substance: ARIPIPRAZOLE
     Indication: PSYCHOTIC SYMPTOM
     Dosage: 10 MILLIGRAM, ONCE A DAY,(EVERY MORNING)
     Route: 065
  4. ARIPIPRAZOLE TABLETS [Interacting]
     Active Substance: ARIPIPRAZOLE
     Indication: SCHIZOPHRENIA
     Dosage: 25 MILLIGRAM, ONCE A DAY
     Route: 065
  5. AMITRIPTYLINE [Interacting]
     Active Substance: AMITRIPTYLINE
     Indication: BACK PAIN
     Dosage: UNK
     Route: 065
  6. DEPAKOTE [Suspect]
     Active Substance: DIVALPROEX SODIUM
     Indication: PRODUCT USED FOR UNKNOWN INDICATION
     Dosage: UNK
     Route: 065

REACTIONS (5)
  - Schizophrenia [Recovering/Resolving]
  - Drug interaction [Unknown]
  - Extrapyramidal disorder [Unknown]
  - Diarrhoea [Unknown]
  - Drug effective for unapproved indication [Unknown]
